FAERS Safety Report 12411401 (Version 1)
Quarter: 2016Q2

REPORT INFORMATION
  Report Type: Report from Study
  Country: BR (occurrence: BR)
  Receive Date: 20160527
  Receipt Date: 20160527
  Transmission Date: 20160815
  Serious: Yes (Hospitalization)
  Sender: FDA-Public Use
  Company Number: PHHY2013BR092340

PATIENT
  Age: 21 Year
  Sex: Male
  Weight: 55 kg

DRUGS (6)
  1. EXJADE [Suspect]
     Active Substance: DEFERASIROX
     Dosage: 20 MG/KG, QD (2 TABLETS OF 500 MG)
     Route: 048
     Dates: start: 20130722
  2. EXJADE [Suspect]
     Active Substance: DEFERASIROX
     Dosage: 1625 MG (30 MG/KG), QD (3 DF OF 500 MG AND 1 DF OF 125 MG)
     Route: 048
     Dates: start: 20151213
  3. EXJADE [Suspect]
     Active Substance: DEFERASIROX
     Indication: THALASSAEMIA
     Dosage: 20 MG/KG, QD (2 TABLETS OF 500 MG)
     Route: 048
     Dates: start: 20080828, end: 20130709
  4. EXJADE [Suspect]
     Active Substance: DEFERASIROX
     Dosage: 1625 MG (30 MG/KG), QD (3 DF OF 500 MG AND 1 DF OF 125 MG)
     Route: 048
  5. EXJADE [Suspect]
     Active Substance: DEFERASIROX
     Dosage: 4 DF, UNK
     Route: 048
  6. EXJADE [Suspect]
     Active Substance: DEFERASIROX
     Dosage: 15 MG/KG, QD (1 TABLET OF 250 MG AND 2 TABLETS OF 500 MG)
     Route: 048

REACTIONS (16)
  - Urine output decreased [Unknown]
  - Urine output increased [Unknown]
  - Diarrhoea [Recovered/Resolved]
  - Muscle spasms [Unknown]
  - Malaise [Recovered/Resolved]
  - Weight decreased [Unknown]
  - Serum ferritin increased [Unknown]
  - Blood creatinine increased [Not Recovered/Not Resolved]
  - Nephrolithiasis [Recovered/Resolved]
  - Arthralgia [Unknown]
  - Dysuria [Unknown]
  - Blood urea abnormal [Unknown]
  - Vomiting [Recovered/Resolved]
  - Renal colic [Recovered/Resolved]
  - Micturition disorder [Unknown]
  - Haemoglobin decreased [Unknown]

NARRATIVE: CASE EVENT DATE: 201307
